FAERS Safety Report 16838742 (Version 2)
Quarter: 2024Q4

REPORT INFORMATION
  Report Type: Report from Study
  Country: IT (occurrence: IT)
  Receive Date: 20190923
  Receipt Date: 20241220
  Transmission Date: 20250115
  Serious: Yes (Other)
  Sender: AUROBINDO
  Company Number: IT-AUROBINDO-AUR-APL-2019-061395

PATIENT

DRUGS (6)
  1. MELPHALAN [Suspect]
     Active Substance: MELPHALAN
     Indication: Ewing^s sarcoma
     Dosage: UNK
     Route: 065
  2. MELPHALAN [Suspect]
     Active Substance: MELPHALAN
     Indication: Metastases to lung
  3. MELPHALAN [Suspect]
     Active Substance: MELPHALAN
     Indication: Stem cell transplant
  4. BUSULFAN [Suspect]
     Active Substance: BUSULFAN
     Indication: Ewing^s sarcoma
     Dosage: UNK
     Route: 065
  5. BUSULFAN [Suspect]
     Active Substance: BUSULFAN
     Indication: Metastases to lung
  6. BUSULFAN [Suspect]
     Active Substance: BUSULFAN
     Indication: Stem cell transplant

REACTIONS (2)
  - Pulmonary toxicity [Unknown]
  - Obstructive airways disorder [Unknown]
